FAERS Safety Report 5767022-X (Version None)
Quarter: 2008Q2

REPORT INFORMATION
  Report Type: 
  Country: None (occurrence: None)
  Receive Date: 20080612
  Receipt Date: 20080604
  Transmission Date: 20081010
  Serious: Yes (Other)
  Sender: FDA-Public Use
  Company Number: BR-JNJFOC-20080601760

PATIENT
  Age: 42 Year
  Sex: Female
  Weight: 54.5 kg

DRUGS (4)
  1. ORTHO EVRA [Suspect]
     Indication: HORMONE LEVEL ABNORMAL
     Route: 062
  2. ORTHO EVRA [Suspect]
     Indication: CONTRACEPTION
     Route: 062
  3. NORFLOXACIN [Concomitant]
     Indication: URINARY TRACT INFECTION
  4. MACRODANTINA [Concomitant]
     Indication: URINARY TRACT INFECTION

REACTIONS (5)
  - HYPERTENSIVE CRISIS [None]
  - METRORRHAGIA [None]
  - OFF LABEL USE [None]
  - PHARMACEUTICAL PRODUCT COMPLAINT [None]
  - PHARMACEUTICAL PRODUCT COUNTERFEIT [None]
